FAERS Safety Report 8428591-4 (Version None)
Quarter: 2012Q2

REPORT INFORMATION
  Report Type: 
  Country: None (occurrence: None)
  Receive Date: 20120605
  Receipt Date: 20120528
  Transmission Date: 20120825
  Serious: Yes (Death)
  Sender: FDA-Public Use
  Company Number: ADR-2012-01007

PATIENT
  Sex: Female

DRUGS (3)
  1. BACLOFEN [Suspect]
     Indication: BRAIN INJURY
  2. BACLOFEN [Suspect]
     Indication: MUSCLE SPASTICITY
  3. BACLOFEN [Suspect]
     Indication: HEAD INJURY

REACTIONS (1)
  - DEATH [None]
